FAERS Safety Report 11925948 (Version 2)
Quarter: 2018Q1

REPORT INFORMATION
  Report Type: Report from Study
  Country: DE (occurrence: DE)
  Receive Date: 20160119
  Receipt Date: 20180305
  Transmission Date: 20180508
  Serious: Yes (Hospitalization)
  Sender: FDA-Public Use
  Company Number: DE-ROCHE-1695693

PATIENT
  Age: 75 Year
  Sex: Male
  Weight: 86 kg

DRUGS (6)
  1. MORPHINE [Concomitant]
     Active Substance: MORPHINE
  2. LORAZEPAM. [Concomitant]
     Active Substance: LORAZEPAM
  3. INSTANYL [Concomitant]
     Active Substance: FENTANYL
  4. ESBRIET [Suspect]
     Active Substance: PIRFENIDONE
     Dosage: DOSE FORM AT 267 MG
     Route: 048
     Dates: start: 201608
  5. TAMSULOSIN [Concomitant]
     Active Substance: TAMSULOSIN
  6. ESBRIET [Suspect]
     Active Substance: PIRFENIDONE
     Indication: IDIOPATHIC PULMONARY FIBROSIS
     Route: 048
     Dates: start: 20110809

REACTIONS (5)
  - Fatigue [Not Recovered/Not Resolved]
  - Pneumonia [Unknown]
  - Apathy [Not Recovered/Not Resolved]
  - Dyspnoea [Not Recovered/Not Resolved]
  - Dyspnoea [Not Recovered/Not Resolved]

NARRATIVE: CASE EVENT DATE: 20151227
